FAERS Safety Report 6612424-2 (Version None)
Quarter: 2010Q1

REPORT INFORMATION
  Report Type: 
  Country: None (occurrence: None)
  Receive Date: 20100129
  Receipt Date: 20100121
  Transmission Date: 20100710
  Serious: Yes (Death, Hospitalization)
  Sender: FDA-Public Use
  Company Number: THYM-1001172

PATIENT
  Age: 70 Year
  Sex: Female
  Weight: 68.2 kg

DRUGS (9)
  1. THYMOGLOBULIN [Suspect]
     Indication: APLASTIC ANAEMIA
     Dosage: 256 MG, QD, INTRAVENOUS
     Route: 042
     Dates: start: 20090625, end: 20090630
  2. CYCLOSPORINE [Suspect]
     Indication: APLASTIC ANAEMIA
     Dosage: 175 MG, ORAL
     Route: 048
     Dates: start: 20090625, end: 20090819
  3. POTASSIUM CHLORIDE [Concomitant]
  4. BISOPROLOL FUMARATE [Concomitant]
  5. ACYCLOVIR [Concomitant]
  6. RANITIDINE [Concomitant]
  7. ITRACONAZOLE [Concomitant]
  8. LACTULOSE [Concomitant]
  9. AMILORIDE (AMILORIDE) [Concomitant]

REACTIONS (12)
  - BACTERIAL INFECTION [None]
  - CHOLECYSTITIS [None]
  - COMPUTERISED TOMOGRAM ABDOMEN ABNORMAL [None]
  - DEVICE RELATED INFECTION [None]
  - ESCHERICHIA SEPSIS [None]
  - FALL [None]
  - HUMERUS FRACTURE [None]
  - NEUTROPENIC SEPSIS [None]
  - PSEUDOMONAS INFECTION [None]
  - SEPSIS [None]
  - STAPHYLOCOCCAL INFECTION [None]
  - STAPHYLOCOCCAL SEPSIS [None]
